FAERS Safety Report 5835343-8 (Version None)
Quarter: 2008Q3

REPORT INFORMATION
  Report Type: 
  Country: None (occurrence: None)
  Receive Date: 20080804
  Receipt Date: 20080728
  Transmission Date: 20090109
  Serious: Yes (Hospitalization)
  Sender: FDA-Public Use
  Company Number: 1000000343

PATIENT
  Age: 18 Year
  Sex: Male

DRUGS (3)
  1. CELEXA [Suspect]
     Indication: OBSESSIVE-COMPULSIVE DISORDER
     Dosage: (UNKNOWN QD)
     Dates: start: 20070801, end: 20080401
  2. CELEXA [Suspect]
     Indication: TOURETTE'S DISORDER
     Dosage: (UNKNOWN QD)
     Dates: start: 20070801, end: 20080401
  3. STRATTERA (40 MILLIGRAM) [Concomitant]

REACTIONS (1)
  - ARTERIAL THROMBOSIS LIMB [None]
